FAERS Safety Report 5364667-6 (Version None)
Quarter: 2007Q2

REPORT INFORMATION
  Report Type: 
  Country: None (occurrence: None)
  Receive Date: 20070621
  Receipt Date: 20070613
  Transmission Date: 20071010
  Serious: Yes (Other)
  Sender: FDA-Public Use
  Company Number: PHEH2007US04378

PATIENT
  Weight: 70.294 kg

DRUGS (21)
  1. ZELNORM [Suspect]
     Indication: IRRITABLE BOWEL SYNDROME
     Dosage: 12 MG, BEFORE BREAKFAST
     Route: 048
     Dates: start: 20060622, end: 20070405
  2. FOLIC ACID [Concomitant]
  3. CALTRATE 600 + VITAMIN D [Concomitant]
  4. FIBERCON [Concomitant]
  5. MAGNESIUM CHELATE [Concomitant]
     Dosage: 100 MG, UNK
  6. LUTEIN [Concomitant]
     Dosage: 20 MG, UNK
  7. ALOE VERA [Concomitant]
     Dosage: 25 MG, UNK
  8. OMEGA 3 [Concomitant]
     Dosage: 1000 MG, UNK
  9. ACETYLCARNITINE [Concomitant]
     Dosage: 500 MG, UNK
  10. AMBIEN [Concomitant]
     Dosage: 10 MG, UNK
  11. TRAZODONE HCL [Concomitant]
     Dosage: 100 MG, UNK
  12. ELAVIL [Concomitant]
     Dosage: 25 MG, UNK
  13. EVISTA [Concomitant]
     Dosage: 6 MG, UNK
  14. ZANAFLEX [Concomitant]
     Dosage: 4 MG, UNK
  15. MIRALAX [Concomitant]
  16. CRESTOR [Concomitant]
     Dosage: 20 MG, UNK
  17. ELMIRON [Concomitant]
     Dosage: 100 MG, UNK
  18. PROSED/DS [Concomitant]
  19. NORVASC [Concomitant]
     Dosage: 10 MG, UNK
  20. TEKTURNA [Concomitant]
     Dosage: 150 MG, UNK
  21. PROBIOTICS (MICROORGANISMS W/PROBIOTIC ACTION) [Concomitant]

REACTIONS (6)
  - ASTHENIA [None]
  - BENIGN NEOPLASM [None]
  - BENIGN TUMOUR EXCISION [None]
  - BLOOD PRESSURE INCREASED [None]
  - FEELING ABNORMAL [None]
  - PALPITATIONS [None]
